FAERS Safety Report 8622043-4 (Version None)
Quarter: 2012Q3

REPORT INFORMATION
  Report Type: 
  Country: None (occurrence: None)
  Receive Date: 20120823
  Receipt Date: 20120823
  Transmission Date: 20120928
  Serious: Yes (Other)
  Sender: FDA-Public Use
  Company Number: None

PATIENT
  Age: 26 Year
  Sex: Female
  Weight: 68.0396 kg

DRUGS (11)
  1. INSULIN INSULATARD NPH NORDISK [Concomitant]
  2. TRAMADOL HCL [Concomitant]
  3. VITAMIN D [Concomitant]
  4. IBUPROFEN [Concomitant]
  5. DIPHENHYDRAMINE HYDROCHLORIDE [Concomitant]
  6. HYDROXYZINE [Concomitant]
  7. LORAZEPAM [Concomitant]
  8. MORPHINE [Concomitant]
  9. COMPLERA [Suspect]
     Indication: HIV INFECTION
     Dosage: 1 TABLET DAILY
  10. INSULIN LISPRO [Concomitant]
  11. PREDNISONE [Concomitant]

REACTIONS (2)
  - ADRENAL INSUFFICIENCY [None]
  - LACTIC ACIDOSIS [None]
